FAERS Safety Report 8595784 (Version 2)
Quarter: 2013Q2

REPORT INFORMATION
  Report Type: Spontaneous
  Country: US (occurrence: US)
  Receive Date: 20120605
  Receipt Date: 20130618
  Transmission Date: 20140414
  Serious: Yes (Hospitalization, Disabling)
  Sender: FDA-Public Use
  Company Number: US-ASTRAZENECA-2012SE34510

PATIENT
  Age: 38 Year
  Sex: Female
  Weight: 104.3 kg

DRUGS (5)
  1. NEXIUM [Suspect]
     Indication: GASTROOESOPHAGEAL REFLUX DISEASE
     Route: 048
     Dates: end: 2007
  2. PRILOSEC [Suspect]
     Route: 048
  3. PEPCID [Concomitant]
     Dosage: ONCE DAILY
     Dates: start: 1986, end: 2000
  4. ZANTAC [Concomitant]
  5. ASPIRIN [Concomitant]

REACTIONS (11)
  - Hiatus hernia [Unknown]
  - Ankle fracture [Unknown]
  - Mental disorder [Unknown]
  - Osteoporosis [Unknown]
  - Multiple fractures [Unknown]
  - Chronic obstructive pulmonary disease [Unknown]
  - Vitamin D deficiency [Unknown]
  - Angina pectoris [Unknown]
  - Arthritis [Unknown]
  - Depression [Unknown]
  - Type 2 diabetes mellitus [Unknown]
